FAERS Safety Report 9787651 (Version 1)
Quarter: 2013Q4

REPORT INFORMATION
  Report Type: Spontaneous
  Country: KR (occurrence: KR)
  Receive Date: 20131230
  Receipt Date: 20131230
  Transmission Date: 20140711
  Serious: Yes (Death)
  Sender: FDA-Public Use
  Company Number: KR-JNJFOC-20131216811

PATIENT
  Age: 71 Year
  Sex: Male

DRUGS (7)
  1. FINIBAX [Suspect]
     Indication: PNEUMONIA
     Route: 041
     Dates: start: 20121022, end: 20121113
  2. TABAXIN [Concomitant]
     Indication: PNEUMONIA
     Route: 065
     Dates: start: 20121018, end: 20121022
  3. CRAVIT [Concomitant]
     Indication: PNEUMONIA
     Route: 065
     Dates: start: 20121020, end: 20121022
  4. OXYCODONE [Concomitant]
     Indication: PNEUMONIA
     Route: 065
     Dates: start: 20121012, end: 20121118
  5. PREDNISOLONE [Concomitant]
     Indication: PNEUMONIA
     Route: 065
     Dates: start: 20121005, end: 20121115
  6. FOSTER [Concomitant]
     Indication: BRONCHITIS CHRONIC
     Route: 065
     Dates: start: 20121005, end: 20121109
  7. SPIRIVA [Concomitant]
     Indication: BRONCHITIS CHRONIC
     Route: 065
     Dates: start: 20121004, end: 20121109

REACTIONS (1)
  - Shock [Fatal]
